FAERS Safety Report 25063060 (Version 1)
Quarter: 2025Q1

REPORT INFORMATION
  Report Type: Spontaneous
  Country: PL (occurrence: PL)
  Receive Date: 20250311
  Receipt Date: 20250311
  Transmission Date: 20250409
  Serious: Yes (Other)
  Sender: RANBAXY
  Company Number: PL-SUN PHARMACEUTICAL INDUSTRIES LTD-2025R1-497994

PATIENT
  Age: 69 Year
  Sex: Female

DRUGS (1)
  1. METHOTREXATE [Suspect]
     Active Substance: METHOTREXATE
     Indication: Pulmonary sarcoidosis
     Route: 065

REACTIONS (3)
  - Arthralgia [Unknown]
  - Peripheral swelling [Unknown]
  - Raynaud^s phenomenon [Unknown]
